FAERS Safety Report 7207867-2 (Version None)
Quarter: 2010Q4

REPORT INFORMATION
  Report Type: 
  Country: None (occurrence: None)
  Receive Date: 20101217
  Receipt Date: 20101202
  Transmission Date: 20110411
  Serious: Yes (Hospitalization, Other)
  Sender: FDA-Public Use
  Company Number: 023062

PATIENT
  Sex: Male

DRUGS (4)
  1. CIMZIA [Suspect]
     Indication: RHEUMATOID ARTHRITIS
     Dosage: 200, 200 MG SUBCUTANEOUS
     Route: 058
     Dates: start: 20100512, end: 20100826
  2. PREDNISOLONE [Concomitant]
  3. METHOTREXATE [Concomitant]
  4. NSAID'S [Concomitant]

REACTIONS (1)
  - LUNG ADENOCARCINOMA [None]
